FAERS Safety Report 17746444 (Version 1)
Quarter: 2020Q2

REPORT INFORMATION
  Report Type: Spontaneous
  Country: CA (occurrence: CA)
  Receive Date: 20200505
  Receipt Date: 20200505
  Transmission Date: 20200714
  Serious: Yes (Disabling)
  Sender: FDA-Public Use
  Company Number: None

PATIENT
  Age: 60 Year
  Sex: Female
  Weight: 63 kg

DRUGS (6)
  1. VITAMIN C [Concomitant]
     Active Substance: ASCORBIC ACID
  2. MAGNESIUM [Concomitant]
     Active Substance: MAGNESIUM
  3. KISQALI [Suspect]
     Active Substance: RIBOCICLIB
     Indication: NEOPLASM MALIGNANT
     Dosage: ?          QUANTITY:3 TABLET(S);?
     Route: 048
  4. VIT D [Concomitant]
     Active Substance: VITAMIN D NOS
  5. LETROZOLE. [Suspect]
     Active Substance: LETROZOLE
  6. CALCIUM [Concomitant]
     Active Substance: CALCIUM

REACTIONS (15)
  - Chest pain [None]
  - Renal disorder [None]
  - Nausea [None]
  - Feeling of despair [None]
  - Pulmonary pain [None]
  - Fatigue [None]
  - Decreased appetite [None]
  - Pain [None]
  - Tumour pain [None]
  - Hepatic enzyme increased [None]
  - Depression [None]
  - Asthenia [None]
  - Neoplasm progression [None]
  - Back pain [None]
  - Alopecia [None]

NARRATIVE: CASE EVENT DATE: 20200324
